FAERS Safety Report 6401308-0 (Version None)
Quarter: 2009Q4

REPORT INFORMATION
  Report Type: 
  Country: None (occurrence: None)
  Receive Date: 20091015
  Receipt Date: 20091009
  Transmission Date: 20100525
  Serious: Yes (Death)
  Sender: FDA-Public Use
  Company Number: PHHY2009US44095

PATIENT
  Age: 74 Year
  Sex: Male

DRUGS (2)
  1. GLEEVEC [Suspect]
     Indication: GASTROINTESTINAL STROMAL TUMOUR
     Dosage: 400 MG DAILY
     Dates: start: 20010201
  2. GLEEVEC [Suspect]
     Dosage: 300 MG DAILY

REACTIONS (3)
  - ACUTE MYELOID LEUKAEMIA [None]
  - NEUTROPENIA [None]
  - PANCYTOPENIA [None]
